FAERS Safety Report 10222419 (Version 1)
Quarter: 2014Q2

REPORT INFORMATION
  Report Type: Spontaneous
  Country: SE (occurrence: SE)
  Receive Date: 20140606
  Receipt Date: 20140606
  Transmission Date: 20141212
  Serious: Yes (Other)
  Sender: FDA-Public Use
  Company Number: SE-WATSON-2013-24986

PATIENT
  Age: 19 Year
  Sex: Male

DRUGS (1)
  1. CIPROFLOXACIN ACTAVIS [Suspect]
     Indication: INFLAMMATION
     Route: 065
     Dates: start: 20131010, end: 20131013

REACTIONS (2)
  - Myalgia [Not Recovered/Not Resolved]
  - Nerve injury [Not Recovered/Not Resolved]
